FAERS Safety Report 6037334-3 (Version None)
Quarter: 2009Q1

REPORT INFORMATION
  Report Type: 
  Country: None (occurrence: None)
  Receive Date: 20090114
  Receipt Date: 20090106
  Transmission Date: 20090719
  Serious: Yes (Hospitalization, Other)
  Sender: FDA-Public Use
  Company Number: GB-ELI_LILLY_AND_COMPANY-GB200901000897

PATIENT
  Sex: Female
  Weight: 1.04 kg

DRUGS (3)
  1. GEMZAR [Suspect]
     Indication: LUNG CANCER METASTATIC
     Dosage: 1000 MG/M2, OTHER
     Route: 064
  2. CISPLATIN [Concomitant]
     Dosage: UNK, ON DAY 1
     Route: 064
  3. CORTICOSTEROID NOS [Concomitant]
     Dosage: UNK, UNKNOWN
     Route: 064

REACTIONS (6)
  - ANAEMIA [None]
  - FOETAL-MATERNAL HAEMORRHAGE [None]
  - LUNG CONSOLIDATION [None]
  - LUNG DISORDER [None]
  - PREMATURE BABY [None]
  - STAPHYLOCOCCAL SEPSIS [None]
